FAERS Safety Report 5134545-6 (Version None)
Quarter: 2006Q4

REPORT INFORMATION
  Report Type: 
  Country: None (occurrence: None)
  Receive Date: 20061019
  Receipt Date: 20061010
  Transmission Date: 20070319
  Serious: Yes (Disabling)
  Sender: FDA-Public Use
  Company Number: 2006-05330

PATIENT
  Age: 52 Year
  Sex: Female

DRUGS (1)
  1. DEXAMETHASONE [Suspect]
     Indication: MULTIPLE SCLEROSIS
     Dosage: 16 MG, DAILY X 5 DAYS, ORAL
     Route: 048
     Dates: start: 20040101, end: 20040101

REACTIONS (7)
  - ACTIVITIES OF DAILY LIVING IMPAIRED [None]
  - CONDITION AGGRAVATED [None]
  - COORDINATION ABNORMAL [None]
  - GRIP STRENGTH DECREASED [None]
  - MUSCULAR WEAKNESS [None]
  - NERVOUS SYSTEM DISORDER [None]
  - PROGRESSIVE MULTIPLE SCLEROSIS [None]
